FAERS Safety Report 25823736 (Version 1)
Quarter: 2025Q3

REPORT INFORMATION
  Report Type: Spontaneous
  Country: EU (occurrence: EU)
  Receive Date: 20250919
  Receipt Date: 20250919
  Transmission Date: 20251021
  Serious: Yes (Other)
  Sender: AMNEAL
  Company Number: EU-AMNEAL PHARMACEUTICALS-2025-AMRX-03472

PATIENT
  Age: 15 Year
  Sex: Male

DRUGS (1)
  1. DEXTROMETHORPHAN HYDROBROMIDE [Suspect]
     Active Substance: DEXTROMETHORPHAN HYDROBROMIDE
     Indication: Product used for unknown indication
     Route: 048

REACTIONS (5)
  - Suicidal ideation [Unknown]
  - Urinary retention [Unknown]
  - Mydriasis [Unknown]
  - Intentional overdose [Unknown]
  - Substance use [Unknown]
